FAERS Safety Report 4450575-1 (Version None)
Quarter: 2004Q3

REPORT INFORMATION
  Report Type: 
  Country: None (occurrence: None)
  Receive Date: 20040913
  Receipt Date: 20040701
  Transmission Date: 20050211
  Serious: No
  Sender: FDA-Public Use
  Company Number: 2004-BP-05268BP (0)

PATIENT
  Age: 83 Year
  Sex: Female

DRUGS (8)
  1. SPIRIVA [Suspect]
     Indication: CHRONIC OBSTRUCTIVE AIRWAYS DISEASE
     Dosage: (18 MCG), IH
     Route: 055
     Dates: start: 20040615
  2. ASACOL [Concomitant]
  3. LASIX [Concomitant]
  4. PRILOSEC [Concomitant]
  5. PAXIL [Concomitant]
  6. PLAVIX [Concomitant]
  7. ALBUTEROL [Concomitant]
  8. ADVAIR (SERETIDE MITE) [Concomitant]

REACTIONS (1)
  - TREMOR [None]
